FAERS Safety Report 6683961-X (Version None)
Quarter: 2010Q2

REPORT INFORMATION
  Report Type: 
  Country: None (occurrence: None)
  Receive Date: 20100416
  Receipt Date: 20100406
  Transmission Date: 20101027
  Serious: Yes (Other)
  Sender: FDA-Public Use
  Company Number: US-PFIZER INC-2009310995

PATIENT
  Sex: Female
  Weight: 122.45 kg

DRUGS (9)
  1. REVATIO [Suspect]
     Indication: PULMONARY HYPERTENSION
     Dosage: 20 MG, 1X/DAY
     Route: 048
     Dates: start: 20091023, end: 20091118
  2. HUMULIN R [Concomitant]
     Dosage: UNK
  3. SYMLIN [Concomitant]
     Dosage: UNK
  4. ATENOLOL [Concomitant]
     Indication: HYPERTENSION
     Dosage: UNK
  5. LEVOTHYROXINE [Concomitant]
     Indication: HYPOTHYROIDISM
     Dosage: UNK
  6. MIRAPEX [Concomitant]
     Indication: RESTLESS LEGS SYNDROME
     Dosage: UNK
  7. PRAVASTATIN [Concomitant]
     Dosage: UNK
  8. SPIRONOLACTONE [Concomitant]
     Dosage: UNK
  9. NORVASC [Concomitant]
     Dosage: UNK

REACTIONS (4)
  - DYSPNOEA [None]
  - FLUID OVERLOAD [None]
  - FLUID RETENTION [None]
  - WEIGHT INCREASED [None]
